FAERS Safety Report 5202061-9 (Version None)
Quarter: 2007Q1

REPORT INFORMATION
  Report Type: 
  Country: None (occurrence: None)
  Receive Date: 20070103
  Receipt Date: 20061219
  Transmission Date: 20070707
  Serious: Yes (Hospitalization)
  Sender: FDA-Public Use
  Company Number: TIF2006A00087

PATIENT
  Age: 72 Year
  Sex: Female

DRUGS (4)
  1. ACTOS [Suspect]
     Indication: DIABETES MELLITUS NON-INSULIN-DEPENDENT
     Dosage: 30 MG (30 MG, 1 IN 1 D)
     Route: 048
     Dates: start: 20060501, end: 20061020
  2. GLICONORM [Concomitant]
  3. MODURETIC 5-50 [Concomitant]
  4. AULIN (NIMESULIDE) [Concomitant]

REACTIONS (3)
  - OEDEMA [None]
  - PULMONARY CONGESTION [None]
  - WEIGHT INCREASED [None]
